FAERS Safety Report 7678629-7 (Version None)
Quarter: 2011Q3

REPORT INFORMATION
  Report Type: 
  Country: None (occurrence: None)
  Receive Date: 20110811
  Receipt Date: 20110803
  Transmission Date: 20111222
  Serious: Yes (Death, Hospitalization)
  Sender: FDA-Public Use
  Company Number: PT-BAXTER-2011BH024400

PATIENT
  Age: 49 Year
  Sex: Male

DRUGS (4)
  1. EXTRANEAL [Suspect]
     Indication: PERITONEAL DIALYSIS
     Route: 033
     Dates: end: 20110711
  2. PHYSIOSOL IN PLASTIC CONTAINER [Suspect]
     Route: 033
     Dates: start: 20091119, end: 20110711
  3. EXTRANEAL [Suspect]
     Route: 033
     Dates: start: 20091119
  4. PHYSIOSOL IN PLASTIC CONTAINER [Suspect]
     Indication: PERITONEAL DIALYSIS
     Route: 033
     Dates: start: 20091119, end: 20110716

REACTIONS (4)
  - PERITONITIS BACTERIAL [None]
  - CATHETER SITE INFECTION [None]
  - CARDIAC ARREST [None]
  - ULTRAFILTRATION FAILURE [None]
